FAERS Safety Report 5858776-2 (Version None)
Quarter: 2008Q3

REPORT INFORMATION
  Report Type: 
  Country: None (occurrence: None)
  Receive Date: 20080818
  Receipt Date: 20080508
  Transmission Date: 20090109
  Serious: No
  Sender: FDA-Public Use
  Company Number: WAES 0804USA03454

PATIENT
  Age: 76 Year
  Sex: Female

DRUGS (6)
  1. JANUVIA [Suspect]
     Indication: BLOOD DISORDER
     Dosage: 100 MG/DAILY/PO
     Route: 048
     Dates: start: 20080401, end: 20080410
  2. JANUVIA [Suspect]
     Indication: TYPE 2 DIABETES MELLITUS
     Dosage: 100 MG/DAILY/PO
     Route: 048
     Dates: start: 20080401, end: 20080410
  3. PRINIVIL [Concomitant]
  4. ASPIRIN [Concomitant]
  5. LEVOTHYROXINE SODIUM [Concomitant]
  6. METFORMIN HCL [Concomitant]

REACTIONS (1)
  - MUSCLE SPASMS [None]
